FAERS Safety Report 7104280-3 (Version None)
Quarter: 2010Q4

REPORT INFORMATION
  Report Type: 
  Country: None (occurrence: None)
  Receive Date: 20101115
  Receipt Date: 20100617
  Transmission Date: 20110411
  Serious: No
  Sender: FDA-Public Use
  Company Number: US-ALLERGAN-1008000US

PATIENT
  Sex: Female

DRUGS (5)
  1. BOTOX COSMETIC [Suspect]
     Indication: SKIN WRINKLING
     Dosage: UNK
     Dates: start: 20100609, end: 20100609
  2. JUVEDERM [Suspect]
     Indication: SKIN WRINKLING
     Dosage: UNK
     Dates: start: 20100609, end: 20100609
  3. ASPIRIN [Concomitant]
     Dosage: 1/2 PILL
  4. VITAMIN E [Concomitant]
  5. FISH OIL [Concomitant]

REACTIONS (4)
  - EYELID OEDEMA [None]
  - INJECTION SITE HAEMATOMA [None]
  - INJECTION SITE SCAB [None]
  - INJECTION SITE VESICLES [None]
